FAERS Safety Report 9508294 (Version 1)
Quarter: 2013Q3

REPORT INFORMATION
  Report Type: Spontaneous
  Country: US (occurrence: None)
  Receive Date: 20130906
  Receipt Date: 20130906
  Transmission Date: 20140515
  Serious: Yes (Life-Threatening, Hospitalization)
  Sender: FDA-Public Use
  Company Number: None

PATIENT
  Age: 46 Year
  Sex: Female
  Weight: 66 kg

DRUGS (1)
  1. SULFAMETHOXAZOLE/TRIMETHOPRIM 800/160 [Suspect]
     Indication: ABSCESS
     Dosage: 1 DS TAB BID BID ORAL
     Route: 048
     Dates: start: 20130810, end: 20130812

REACTIONS (3)
  - Hypotension [None]
  - Mental status changes [None]
  - Stevens-Johnson syndrome [None]
